FAERS Safety Report 8798467 (Version 1)
Quarter: 2012Q4

REPORT INFORMATION
  Report Type: 
  Country: BR (occurrence: BR)
  Receive Date: 20120920
  Receipt Date: 20120920
  Transmission Date: 20130627
  Serious: Yes (Other)
  Sender: FDA-Public Use
  Company Number: BR-AMGEN-BRASP2007000147

PATIENT

DRUGS (1)
  1. ENBREL [Suspect]
     Indication: PRODUCT USED FOR UNKNOWN INDICATION
     Dosage: UNK
     Route: 065
     Dates: end: 200712

REACTIONS (5)
  - Road traffic accident [Unknown]
  - Joint injury [Unknown]
  - Skeletal injury [Unknown]
  - Limb injury [Unknown]
  - Impaired healing [Unknown]
